FAERS Safety Report 9991900 (Version 1)
Quarter: 2014Q1

REPORT INFORMATION
  Report Type: Report from Study
  Country: US (occurrence: US)
  Receive Date: 20140310
  Receipt Date: 20140310
  Transmission Date: 20141002
  Serious: Yes (Other)
  Sender: FDA-Public Use
  Company Number: US-ALEXION-A201305132

PATIENT
  Sex: 0

DRUGS (1)
  1. SOLIRIS [Suspect]
     Indication: PAROXYSMAL NOCTURNAL HAEMOGLOBINURIA
     Dosage: UNK
     Route: 042

REACTIONS (8)
  - Abscess fungal [Unknown]
  - Platelet transfusion [Unknown]
  - Pyrexia [Unknown]
  - Platelet count decreased [Unknown]
  - Sedation [Unknown]
  - Abscess drainage [Unknown]
  - Pain [Unknown]
  - Heart rate increased [Unknown]
